FAERS Safety Report 8425013-4 (Version None)
Quarter: 2012Q2

REPORT INFORMATION
  Report Type: 
  Country: None (occurrence: None)
  Receive Date: 20120605
  Receipt Date: 20120605
  Transmission Date: 20120825
  Serious: Yes (Disabling)
  Sender: FDA-Public Use
  Company Number: None

PATIENT
  Age: 7 Year
  Sex: Male
  Weight: 22.5 kg

DRUGS (2)
  1. ALBUTEROL [Concomitant]
  2. FOCALIN XR [Suspect]
     Indication: ATTENTION DEFICIT/HYPERACTIVITY DISORDER
     Dosage: 10. MG ONE PER DAY BY MOUTH
     Route: 048

REACTIONS (3)
  - TIC [None]
  - ABNORMAL BEHAVIOUR [None]
  - TOOTH EXTRACTION [None]
